FAERS Safety Report 23035127 (Version 1)
Quarter: 2023Q4

REPORT INFORMATION
  Report Type: Spontaneous
  Country: US (occurrence: US)
  Receive Date: 20231005
  Receipt Date: 20231005
  Transmission Date: 20240109
  Serious: No
  Sender: FDA-Public Use
  Company Number: US-Horizon-KRY-1214-2020

PATIENT

DRUGS (7)
  1. KRYSTEXXA [Suspect]
     Active Substance: PEGLOTICASE
     Indication: Gout
     Dosage: BI-WEEKLY INFUSIONS
     Route: 042
     Dates: start: 20200128
  2. COLCHICINE [Concomitant]
     Active Substance: COLCHICINE
  3. CLONIDINE [Concomitant]
     Active Substance: CLONIDINE
     Indication: Hypertension
     Dosage: 2MG
  4. Calcitonin horomone [Concomitant]
     Dosage: 200 UNITS
  5. BYSTOLIC [Concomitant]
     Active Substance: NEBIVOLOL HYDROCHLORIDE
     Indication: Hypertension
     Dosage: 10MG
  6. TRAMADOL [Concomitant]
     Active Substance: TRAMADOL\TRAMADOL HYDROCHLORIDE
     Indication: Pain
     Dosage: PRN
  7. FOLIC ACID [Concomitant]
     Active Substance: FOLIC ACID
     Dosage: QD

REACTIONS (4)
  - Blood pressure increased [Unknown]
  - Somnolence [Recovered/Resolved]
  - Pruritus [Recovered/Resolved]
  - Rash [Recovered/Resolved]

NARRATIVE: CASE EVENT DATE: 20200201
